FAERS Safety Report 21784502 (Version 2)
Quarter: 2022Q4

REPORT INFORMATION
  Report Type: Spontaneous
  Country: CA (occurrence: CA)
  Receive Date: 20221227
  Receipt Date: 20221229
  Transmission Date: 20230113
  Serious: Yes (Other)
  Sender: FDA-Public Use
  Company Number: CA-PFIZER INC-PV202200081354

PATIENT
  Age: 79 Year
  Sex: Male

DRUGS (1)
  1. RAPAMUNE [Suspect]
     Active Substance: SIROLIMUS
     Indication: Aplasia pure red cell
     Dosage: 1 MG * 2.00 DAILY

REACTIONS (4)
  - Macroglossia [Unknown]
  - Off label use [Unknown]
  - Stomatitis [Unknown]
  - Tongue discolouration [Unknown]
